FAERS Safety Report 7529217-4 (Version None)
Quarter: 2011Q2

REPORT INFORMATION
  Report Type: 
  Country: None (occurrence: None)
  Receive Date: 20110520
  Receipt Date: 20110308
  Transmission Date: 20111010
  Serious: No
  Sender: FDA-Public Use
  Company Number: 028986

PATIENT
  Age: 67 Year
  Sex: Male

DRUGS (1)
  1. LACOSAMIDE [Suspect]
     Dosage: (150 MG QD, 150 MG AT BED TIME)

REACTIONS (2)
  - SOMNOLENCE [None]
  - ABDOMINAL DISCOMFORT [None]
